FAERS Safety Report 6065722-8 (Version None)
Quarter: 2009Q1

REPORT INFORMATION
  Report Type: 
  Country: None (occurrence: None)
  Receive Date: 20090202
  Receipt Date: 20090119
  Transmission Date: 20090719
  Serious: Yes (Hospitalization, Other)
  Sender: FDA-Public Use
  Company Number: CHPA2009US00871

PATIENT
  Age: 66 Year
  Sex: Male

DRUGS (2)
  1. NODOZ (NCH) (CAFFEINE) CAPLET [Suspect]
     Indication: ASTHENIA
     Dosage: 1000 MG - 1200 MG, QD, ORAL; 200 MG, TID, ORAL
     Route: 048
     Dates: end: 20090101
  2. NODOZ (NCH) (CAFFEINE) CAPLET [Suspect]
     Indication: ASTHENIA
     Dosage: 1000 MG - 1200 MG, QD, ORAL; 200 MG, TID, ORAL
     Route: 048
     Dates: start: 19900101

REACTIONS (6)
  - ANXIETY [None]
  - HEART RATE DECREASED [None]
  - INTENTIONAL DRUG MISUSE [None]
  - IRRITABLE BOWEL SYNDROME [None]
  - MYOCARDIAL INFARCTION [None]
  - TRANSIENT ISCHAEMIC ATTACK [None]
